FAERS Safety Report 9546453 (Version 2)
Quarter: 2013Q4

REPORT INFORMATION
  Report Type: Report from Study
  Country: US (occurrence: US)
  Receive Date: 20130923
  Receipt Date: 20131122
  Transmission Date: 20140711
  Serious: Yes (Death)
  Sender: FDA-Public Use
  Company Number: US-SANOFI-AVENTIS-2013SA092154

PATIENT
  Sex: 0

DRUGS (1)
  1. ZALTRAP [Suspect]
     Indication: CARCINOID TUMOUR
     Route: 065

REACTIONS (1)
  - Disease progression [Fatal]
